FAERS Safety Report 15632495 (Version 1)
Quarter: 2018Q4

REPORT INFORMATION
  Report Type: Report from Study
  Country: US (occurrence: US)
  Receive Date: 20181119
  Receipt Date: 20181119
  Transmission Date: 20190205
  Serious: Yes (Hospitalization)
  Sender: FDA-Public Use
  Company Number: US-JNJFOC-20181119863

PATIENT
  Age: 70 Year
  Sex: Male

DRUGS (10)
  1. TIMOLOL. [Concomitant]
     Active Substance: TIMOLOL
  2. IMBRUVICA [Suspect]
     Active Substance: IBRUTINIB
     Indication: LYMPHOCYTIC LEUKAEMIA
     Route: 048
     Dates: start: 20180525, end: 2018
  3. IMBRUVICA [Suspect]
     Active Substance: IBRUTINIB
     Indication: MYELOID LEUKAEMIA
     Route: 048
     Dates: start: 20180525, end: 2018
  4. VITAMIN D [Concomitant]
     Active Substance: CHOLECALCIFEROL
  5. CLARITIN-D NOS [Concomitant]
     Active Substance: LORATADINE\PSEUDOEPHEDRINE SULFATE
  6. ATENOLOL. [Concomitant]
     Active Substance: ATENOLOL
  7. SIMVASTATIN. [Concomitant]
     Active Substance: SIMVASTATIN
  8. XARELTO [Concomitant]
     Active Substance: RIVAROXABAN
  9. DICYCLOMINE [Concomitant]
     Active Substance: DICYCLOMINE HYDROCHLORIDE
  10. ZOFRAN [Concomitant]
     Active Substance: ONDANSETRON HYDROCHLORIDE

REACTIONS (7)
  - Product use in unapproved indication [Unknown]
  - Confusional state [Unknown]
  - White blood cell count increased [Unknown]
  - Off label use [Unknown]
  - Dysarthria [Recovered/Resolved]
  - Weight decreased [Unknown]
  - Decreased appetite [Unknown]

NARRATIVE: CASE EVENT DATE: 20180525
